FAERS Safety Report 16033485 (Version 1)
Quarter: 2019Q1

REPORT INFORMATION
  Report Type: Spontaneous
  Country: US (occurrence: US)
  Receive Date: 20190305
  Receipt Date: 20190305
  Transmission Date: 20190418
  Serious: No
  Sender: FDA-Public Use
  Company Number: US-PRINSTON PHARMACEUTICAL INC.-2018PRN00735

PATIENT
  Sex: Female
  Weight: 83.9 kg

DRUGS (3)
  1. VALSARTAN AND HYDROCHLOROTHIAZIDE [Suspect]
     Active Substance: HYDROCHLOROTHIAZIDE\VALSARTAN
     Indication: HYPERTENSION
     Dosage: 1 TABLETS, 1X/DAY
     Route: 048
     Dates: start: 2016
  2. TOPAMAX [Concomitant]
     Active Substance: TOPIRAMATE
  3. GABAPENTIN. [Concomitant]
     Active Substance: GABAPENTIN

REACTIONS (6)
  - Pain [Recovered/Resolved]
  - Asthenia [Recovered/Resolved]
  - Abdominal pain lower [Recovered/Resolved]
  - Dysgeusia [Not Recovered/Not Resolved]
  - Back pain [Recovered/Resolved]
  - Infrequent bowel movements [Recovered/Resolved]
